FAERS Safety Report 10797984 (Version 8)
Quarter: 2017Q2

REPORT INFORMATION
  Report Type: Spontaneous
  Country: US (occurrence: US)
  Receive Date: 20150216
  Receipt Date: 20170503
  Transmission Date: 20170829
  Serious: Yes (Hospitalization)
  Sender: FDA-Public Use
  Company Number: US-PFIZER INC-2015053636

PATIENT
  Age: 66 Year
  Sex: Female

DRUGS (24)
  1. MELATONIN [Concomitant]
     Active Substance: MELATONIN
     Indication: SLEEP DISORDER
     Dosage: 3 MG, UNK
  2. ROXICODONE [Concomitant]
     Active Substance: OXYCODONE HYDROCHLORIDE
     Indication: PAIN
     Dosage: 30MG AS NEEDED 4 TIMES A DAY
  3. EFFEXOR [Concomitant]
     Active Substance: VENLAFAXINE HYDROCHLORIDE
     Indication: DEPRESSION
     Dosage: 150 MG, 2X/DAY
  4. ROBAXIN [Concomitant]
     Active Substance: METHOCARBAMOL
     Indication: MUSCLE RELAXANT THERAPY
     Dosage: 100 MG, 4X/DAY
     Route: 042
  5. PROCARDIA [Concomitant]
     Active Substance: NIFEDIPINE
     Indication: MITRAL VALVE INCOMPETENCE
     Dosage: 10 MG, 1X/DAY
  6. PRILOSEC [Concomitant]
     Active Substance: OMEPRAZOLE MAGNESIUM
     Indication: DYSPEPSIA
     Dosage: 40 MG, 2X/DAY
  7. XELJANZ [Suspect]
     Active Substance: TOFACITINIB CITRATE
     Indication: RHEUMATOID ARTHRITIS
     Dosage: UNK UNK, 1X/DAY (10 ONCE A DAY)
     Dates: start: 20130522, end: 20130809
  8. KLONOPIN [Concomitant]
     Active Substance: CLONAZEPAM
     Indication: MUSCLE RELAXANT THERAPY
     Dosage: 2MG AT BEDTIME
  9. CALCIUM [Concomitant]
     Active Substance: CALCIUM
     Dosage: 500 MG, UNK
  10. METHADONE [Concomitant]
     Active Substance: METHADONE HYDROCHLORIDE
     Indication: PAIN
     Dosage: 20 MG, 3X/DAY
  11. VITAMIN B12 [Concomitant]
     Active Substance: CYANOCOBALAMIN
     Dosage: 2500 MG, 1X/DAY
  12. ALBUTEROL. [Concomitant]
     Active Substance: ALBUTEROL
     Indication: DYSPNOEA
     Dosage: UNK
  13. VITAMIN D [Concomitant]
     Active Substance: CHOLECALCIFEROL
     Dosage: 2000 UNITS, UNK
  14. COENZYME Q10 [Concomitant]
     Active Substance: UBIDECARENONE
     Dosage: 200 MG, 2X/DAY
  15. PRIMIDONE. [Concomitant]
     Active Substance: PRIMIDONE
     Indication: ESSENTIAL TREMOR
     Dosage: 150MG (3 TABLETS) TWICE A DAY
  16. ASPIRIN. [Concomitant]
     Active Substance: ASPIRIN
     Indication: CEREBROVASCULAR ACCIDENT PROPHYLAXIS
     Dosage: 81 MG, UNK
  17. PRIVIGEN [Concomitant]
     Active Substance: HUMAN IMMUNOGLOBULIN G
     Indication: IMMUNODEFICIENCY COMMON VARIABLE
     Dosage: 20GM /200ML IV EVERY 2 WEEKS
     Route: 042
  18. REQUIP [Concomitant]
     Active Substance: ROPINIROLE HYDROCHLORIDE
     Indication: RESTLESS LEGS SYNDROME
     Dosage: 0.5 MG, 3X/DAY
  19. XELJANZ [Suspect]
     Active Substance: TOFACITINIB CITRATE
     Dosage: 10 MG, 2X/DAY
     Dates: start: 201503
  20. SYMBICORT [Concomitant]
     Active Substance: BUDESONIDE\FORMOTEROL FUMARATE DIHYDRATE
     Indication: DYSPNOEA
     Dosage: UNK
  21. FLONASE [Concomitant]
     Active Substance: FLUTICASONE PROPIONATE
     Dosage: UNK, AS NEEDED
     Route: 045
  22. ROBAXIN [Concomitant]
     Active Substance: METHOCARBAMOL
     Dosage: 750MG EVERY 2 WEEKS
     Route: 042
  23. SINGULAIR [Concomitant]
     Active Substance: MONTELUKAST SODIUM
     Indication: SINUS DISORDER
     Dosage: 10 MG, 1X/DAY
  24. PREDNISONE. [Concomitant]
     Active Substance: PREDNISONE
     Indication: ARTHRITIS
     Dosage: 5MG IN THE AM

REACTIONS (7)
  - Tooth infection [Not Recovered/Not Resolved]
  - Sinusitis [Unknown]
  - Headache [Recovering/Resolving]
  - Condition aggravated [Recovering/Resolving]
  - Viral upper respiratory tract infection [Not Recovered/Not Resolved]
  - Bronchitis [Unknown]
  - Drug ineffective [Unknown]

NARRATIVE: CASE EVENT DATE: 201503
